FAERS Safety Report 25062722 (Version 2)
Quarter: 2025Q1

REPORT INFORMATION
  Report Type: Spontaneous
  Country: ES (occurrence: ES)
  Receive Date: 20250311
  Receipt Date: 20250325
  Transmission Date: 20250409
  Serious: Yes (Other)
  Sender: AUROBINDO
  Company Number: ES-AEMPS-1639438

PATIENT
  Age: 15 Year
  Sex: Male

DRUGS (3)
  1. ACETAMINOPHEN [Suspect]
     Active Substance: ACETAMINOPHEN
     Indication: Upper respiratory tract infection
     Route: 065
     Dates: start: 20250113, end: 20250115
  2. AZITHROMYCIN [Suspect]
     Active Substance: AZITHROMYCIN
     Indication: Upper respiratory tract infection
     Route: 065
     Dates: start: 20250113
  3. AMOXICILLIN\BROMHEXINE [Suspect]
     Active Substance: AMOXICILLIN\BROMHEXINE
     Indication: Upper respiratory tract infection
     Route: 065
     Dates: start: 20250113, end: 20250115

REACTIONS (2)
  - Erythema [Unknown]
  - Lip oedema [Unknown]

NARRATIVE: CASE EVENT DATE: 20250115
